FAERS Safety Report 4856539-8 (Version None)
Quarter: 2005Q4

REPORT INFORMATION
  Report Type: 
  Country: None (occurrence: None)
  Receive Date: 20051219
  Receipt Date: 20050104
  Transmission Date: 20060501
  Serious: No
  Sender: FDA-Public Use
  Company Number: US-GLAXOSMITHKLINE-A0539167A

PATIENT
  Age: 37 Year
  Sex: Male

DRUGS (2)
  1. NICODERM CQ [Suspect]
     Dates: start: 20050101
  2. TYLENOL (CAPLET) [Concomitant]

REACTIONS (3)
  - ABNORMAL DREAMS [None]
  - EMOTIONAL DISORDER [None]
  - NERVOUSNESS [None]
